FAERS Safety Report 21465857 (Version 1)
Quarter: 2022Q4

REPORT INFORMATION
  Report Type: Spontaneous
  Country: IT (occurrence: IT)
  Receive Date: 20221017
  Receipt Date: 20221017
  Transmission Date: 20230112
  Serious: Yes (Death, Hospitalization, Other)
  Sender: FDA-Public Use
  Company Number: IT-BoehringerIngelheim-2022-BI-197303

PATIENT
  Age: 58 Year
  Sex: Female

DRUGS (3)
  1. AFATINIB [Suspect]
     Active Substance: AFATINIB
     Indication: Metastases to central nervous system
     Dates: start: 202001
  2. AFATINIB [Suspect]
     Active Substance: AFATINIB
     Indication: EGFR gene mutation
  3. AFATINIB [Suspect]
     Active Substance: AFATINIB
     Indication: Non-small cell lung cancer

REACTIONS (8)
  - COVID-19 [Fatal]
  - Acute respiratory distress syndrome [Fatal]
  - Malignant neoplasm progression [Recovering/Resolving]
  - Skin toxicity [Recovered/Resolved]
  - Visual impairment [Unknown]
  - Headache [Unknown]
  - Alopecia [Unknown]
  - Performance status decreased [Unknown]
